FAERS Safety Report 5124257-7 (Version None)
Quarter: 2006Q3

REPORT INFORMATION
  Report Type: 
  Country: None (occurrence: None)
  Receive Date: 20060815
  Receipt Date: 20060428
  Transmission Date: 20061208
  Serious: Yes (Hospitalization)
  Sender: FDA-Public Use
  Company Number: 2006058096

PATIENT
  Age: 57 Year
  Sex: Female

DRUGS (30)
  1. PREDNISOLONE [Suspect]
     Indication: ILL-DEFINED DISORDER
     Dosage: INTRAVENOUS
     Route: 042
  2. ENBREL [Suspect]
     Indication: RHEUMATOID ARTHRITIS
     Dosage: (50 MG,1 IN 1 WK),SUBCUTANEOUS
     Route: 058
     Dates: start: 20050519
  3. DICLOFENAC SODIUM [Suspect]
     Indication: ILL-DEFINED DISORDER
     Dosage: 75 MG (1 IN 1 D),ORAL
     Route: 048
     Dates: end: 20050818
  4. TACROLIMUS (TACROLIMUS) [Concomitant]
  5. ISONIAZID [Concomitant]
  6. SULFAMETHOXAZOLE + TRIMETHOPRIM [Concomitant]
  7. EPINASTINE (EPINASTINE) [Concomitant]
  8. ENPROSTIL (ENPROSTIL) [Concomitant]
  9. DEXAMETHASONE TAB [Concomitant]
  10. FAMOTIDINE [Concomitant]
  11. METOCLOPRAMIDE [Concomitant]
  12. FERROUS FUMARATE [Concomitant]
  13. DOMPERIDONE (DOMPERIDONE) [Concomitant]
  14. SODIUM ALGINATE (SODIUM ALGINATE) [Concomitant]
  15. SODIUM PICOSULFATE (SODIUM PICOSULFATE) [Concomitant]
  16. GLUCOSE (GLUCOSE) [Concomitant]
  17. SULPIRIDE (SULPIRIDE) [Concomitant]
  18. CLINDAMYCIN (CLINDAMYCIN) [Concomitant]
  19. MAGNESIUM OXIDE (MAGNESIUM OXIDE) [Concomitant]
  20. AMPHOTERICIN B [Concomitant]
  21. DAPSONE [Concomitant]
  22. SACCHARATED IRON OXIDE (SACCHARATED IRON OXIDE) [Concomitant]
  23. BENFOTIAMINE (BENFOTIAMINE) [Concomitant]
  24. CYANOCOBALAMIN [Concomitant]
  25. PYRIDOXINE (PYRIDOXINE) [Concomitant]
  26. OMEPRAZOLE [Concomitant]
  27. CEFOTIAM (CEFOTIAM) [Concomitant]
  28. PENTAZOCINE LACTATE [Concomitant]
  29. HYDROXYZINE [Concomitant]
  30. ERYTHROMYCIN [Concomitant]

REACTIONS (2)
  - GASTRIC ULCER [None]
  - PRURIGO [None]
